FAERS Safety Report 6986765-3 (Version None)
Quarter: 2010Q3

REPORT INFORMATION
  Report Type: 
  Country: None (occurrence: None)
  Receive Date: 20100915
  Receipt Date: 20090807
  Transmission Date: 20110219
  Serious: No
  Sender: FDA-Public Use
  Company Number: US-WYE-H10527309

PATIENT
  Age: 56 Year
  Sex: Male

DRUGS (4)
  1. PRISTIQ [Suspect]
     Indication: ANXIETY
     Route: 048
  2. ZYPREXA [Concomitant]
  3. KLONOPIN [Concomitant]
  4. VICODIN [Concomitant]

REACTIONS (3)
  - AGITATION [None]
  - MUSCULOSKELETAL PAIN [None]
  - PAIN IN EXTREMITY [None]
